FAERS Safety Report 8956858 (Version 1)
Quarter: 2012Q4

REPORT INFORMATION
  Report Type: 
  Country: DE (occurrence: DE)
  Receive Date: 20121210
  Receipt Date: 20121210
  Transmission Date: 20130627
  Serious: Yes (Other)
  Sender: FDA-Public Use
  Company Number: DE-ROCHE-1141719

PATIENT
  Age: 62 Year
  Sex: Female
  Weight: 58 kg

DRUGS (7)
  1. AVASTIN [Suspect]
     Indication: BREAST CANCER
     Route: 042
     Dates: start: 20120705, end: 20120705
  2. PACLITAXEL [Suspect]
     Indication: BREAST CANCER
     Route: 042
     Dates: start: 20120705, end: 20120705
  3. DEXAMETHASON [Concomitant]
     Route: 042
     Dates: start: 20120705, end: 20120705
  4. TAVEGIL [Concomitant]
     Route: 042
     Dates: start: 20120705, end: 20120705
  5. ZANTIC [Concomitant]
     Route: 042
     Dates: start: 20120705, end: 20120705
  6. NAVOBAN [Concomitant]
     Route: 042
     Dates: start: 20120705, end: 20120705
  7. MCP [Concomitant]
     Indication: PAIN
     Route: 060
     Dates: start: 20120705

REACTIONS (2)
  - Skin disorder [Recovered/Resolved with Sequelae]
  - Impaired healing [Recovered/Resolved with Sequelae]
